FAERS Safety Report 4486410-5 (Version None)
Quarter: 2004Q4

REPORT INFORMATION
  Report Type: 
  Country: None (occurrence: None)
  Receive Date: 20041027
  Receipt Date: 20041018
  Transmission Date: 20050328
  Serious: Yes (Hospitalization)
  Sender: FDA-Public Use
  Company Number: AT-ABBOTT-04P-009-0277960-00

PATIENT
  Age: 54 Year
  Sex: Female

DRUGS (15)
  1. DEPAKENE [Suspect]
     Indication: BIPOLAR DISORDER
     Dates: start: 20040811, end: 20040820
  2. DEPAKENE [Suspect]
     Indication: MANIA
     Dates: start: 20040809, end: 20040809
  3. DEPAKENE [Suspect]
     Indication: AGORAPHOBIA
     Dates: start: 20040810, end: 20040810
  4. DEPAKENE [Suspect]
     Indication: PANIC DISORDER
     Dates: start: 20040821, end: 20040821
  5. DEPAKENE [Suspect]
     Dates: start: 20040822
  6. QUETIAPINE [Interacting]
     Indication: DRUG USE FOR UNKNOWN INDICATION
     Dates: start: 20040816, end: 20040820
  7. QUETIAPINE [Interacting]
     Dates: start: 20040809, end: 20040809
  8. QUETIAPINE [Interacting]
     Dates: start: 20040810, end: 20040810
  9. QUETIAPINE [Interacting]
     Dates: start: 20040811, end: 20040815
  10. QUETIAPINE [Interacting]
     Dates: start: 20040821, end: 20040821
  11. OXAZEPAM [Interacting]
     Indication: DRUG USE FOR UNKNOWN INDICATION
     Dates: start: 20040820, end: 20040820
  12. OXAZEPAM [Interacting]
     Dates: start: 20040810, end: 20040818
  13. OXAZEPAM [Interacting]
     Dates: start: 20040819, end: 20040819
  14. OXAZEPAM [Interacting]
     Dates: start: 20040821, end: 20040821
  15. OXAZEPAM [Interacting]
     Dates: start: 20040822, end: 20040822

REACTIONS (4)
  - COUGH [None]
  - DRUG INTERACTION [None]
  - MUSCLE SPASTICITY [None]
  - SOMNOLENCE [None]
